FAERS Safety Report 23939089 (Version 1)
Quarter: 2024Q2

REPORT INFORMATION
  Report Type: Spontaneous
  Country: US (occurrence: US)
  Receive Date: 20240604
  Receipt Date: 20240604
  Transmission Date: 20240716
  Serious: Yes (Death, Other)
  Sender: FDA-Public Use
  Company Number: US-STRIDES ARCOLAB LIMITED-2024SP006435

PATIENT
  Age: 1 Year
  Sex: Male

DRUGS (7)
  1. METHOTREXATE [Suspect]
     Active Substance: METHOTREXATE
     Indication: Central nervous system neoplasm
     Dosage: UNK, CYCLICAL (RECEIVED 3 CYCLES)
     Route: 065
  2. ETOPOSIDE [Suspect]
     Active Substance: ETOPOSIDE
     Indication: Central nervous system neoplasm
     Dosage: UNK, CYCLICAL (RECEIVED 3 CYCLES, LATER RECEIVED 1 CYCLE)
     Route: 065
  3. CISPLATIN [Suspect]
     Active Substance: CISPLATIN
     Indication: Central nervous system neoplasm
     Dosage: UNK (RECEIVED 3 CYCLES)
     Route: 065
  4. VINCRISTINE [Suspect]
     Active Substance: VINCRISTINE
     Indication: Central nervous system neoplasm
     Dosage: UNK (RECEIVED 3 CYCLES)
     Route: 065
  5. CYCLOPHOSPHAMIDE [Suspect]
     Active Substance: CYCLOPHOSPHAMIDE
     Indication: Central nervous system neoplasm
     Dosage: UNK UNK, CYCLICAL
     Route: 065
  6. CARBOPLATIN [Suspect]
     Active Substance: CARBOPLATIN
     Indication: Central nervous system neoplasm
     Dosage: UNK, CYCLICAL (RECEIVED 1 CYCLE)
     Route: 065
  7. THIOTEPA [Suspect]
     Active Substance: THIOTEPA
     Indication: Central nervous system neoplasm
     Dosage: UNK, CYCLICAL (RECEIVED 1 CYCLE)
     Route: 065

REACTIONS (4)
  - Death [Fatal]
  - Venoocclusive liver disease [Unknown]
  - Hypotension [Unknown]
  - Off label use [Unknown]
